FAERS Safety Report 6004350-7 (Version None)
Quarter: 2008Q4

REPORT INFORMATION
  Report Type: 
  Country: None (occurrence: None)
  Receive Date: 20081216
  Receipt Date: 20081213
  Transmission Date: 20090506
  Serious: Yes (Other)
  Sender: FDA-Public Use
  Company Number: CA-WYE-H07096208

PATIENT
  Age: 3 Year
  Sex: Male

DRUGS (1)
  1. DIMETAPP COLD [Suspect]
     Indication: NASOPHARYNGITIS
     Dosage: 2.5 ML (2 TO 6 DOSES DAILY)
     Route: 048
     Dates: start: 20081102, end: 20081112

REACTIONS (3)
  - OFF LABEL USE [None]
  - PRODUCT QUALITY ISSUE [None]
  - PYREXIA [None]
